FAERS Safety Report 25128112 (Version 1)
Quarter: 2025Q1

REPORT INFORMATION
  Report Type: Spontaneous
  Country: US (occurrence: US)
  Receive Date: 20250327
  Receipt Date: 20250327
  Transmission Date: 20250409
  Serious: Yes (Death, Hospitalization, Other)
  Sender: HIKMA
  Company Number: US-HIKMA PHARMACEUTICALS USA INC.-US-H14001-25-02664

PATIENT
  Age: 75 Year
  Sex: Male
  Weight: 113.4 kg

DRUGS (2)
  1. AXATILIMAB [Suspect]
     Active Substance: AXATILIMAB
     Indication: Chronic graft versus host disease
     Route: 042
     Dates: start: 20241016
  2. PREDNISONE [Suspect]
     Active Substance: PREDNISONE
     Indication: Product used for unknown indication
     Route: 065

REACTIONS (13)
  - Hypervolaemia [Recovered/Resolved]
  - Oedema peripheral [Recovered/Resolved]
  - Asthenia [Unknown]
  - Dizziness [Unknown]
  - Dyspnoea [Unknown]
  - Anxiety [Unknown]
  - Respiratory disorder [Unknown]
  - Panic attack [Unknown]
  - Hypoxia [Recovered/Resolved]
  - Delirium [Unknown]
  - Deep vein thrombosis [Unknown]
  - Respiratory failure [Fatal]
  - Muscular weakness [Recovered/Resolved]

NARRATIVE: CASE EVENT DATE: 20241104
